FAERS Safety Report 8957238 (Version 2)
Quarter: 2015Q2

REPORT INFORMATION
  Report Type: Report from Study
  Country: FR (occurrence: FR)
  Receive Date: 20121210
  Receipt Date: 20150428
  Transmission Date: 20150821
  Serious: Yes (Death, Hospitalization)
  Sender: FDA-Public Use
  Company Number: FR-ROCHE-1164898

PATIENT
  Age: 49 Year
  Sex: Male

DRUGS (3)
  1. RITUXIMAB [Suspect]
     Active Substance: RITUXIMAB
     Indication: RHEUMATOID ARTHRITIS
     Dosage: SECOND INFUSION OF RITUXIMAB WAS ON 23/FEB/2007 (DAY 15), SUBSEQUENT DOSE OF RITUXIMAB: 04/SEP/2007,
     Route: 042
     Dates: start: 20070130
  2. CORTANCYL [Concomitant]
     Active Substance: PREDNISONE
     Dosage: 15MG AT FIRST INFUSION AND 10 MG AT SECOND INFUSION.
     Route: 065
     Dates: start: 20100122
  3. CORTANCYL [Concomitant]
     Active Substance: PREDNISONE
     Dosage: SUBSEQUENT DOSE OF PREDNISONE: 23/FEB/2007, 04/SEP/2007, 17/SEP/2007, 30/JUN/2008, 15/JUL/2008, 30/D
     Route: 065

REACTIONS (2)
  - Lung cancer metastatic [Unknown]
  - Haemoptysis [Fatal]

NARRATIVE: CASE EVENT DATE: 20101214
